FAERS Safety Report 22906156 (Version 2)
Quarter: 2024Q2

REPORT INFORMATION
  Report Type: Report from Study
  Country: US (occurrence: US)
  Receive Date: 20230905
  Receipt Date: 20240620
  Transmission Date: 20240716
  Serious: Yes (Hospitalization)
  Sender: FDA-Public Use
  Company Number: US-BAUSCH-BL-2023-001610

PATIENT
  Age: 59 Year
  Sex: Male

DRUGS (2)
  1. XIFAXAN [Suspect]
     Active Substance: RIFAXIMIN
     Indication: Hepatic encephalopathy
     Route: 048
     Dates: start: 20220908, end: 202301
  2. XIFAXAN [Suspect]
     Active Substance: RIFAXIMIN
     Dosage: DURATION 18 MONTHS
     Route: 048
     Dates: start: 202301

REACTIONS (5)
  - Pain [Unknown]
  - Ammonia increased [Unknown]
  - Endoscopy [Unknown]
  - COVID-19 [Recovered/Resolved]
  - Treatment noncompliance [Unknown]

NARRATIVE: CASE EVENT DATE: 20230101
